FAERS Safety Report 4440245-8 (Version None)
Quarter: 2004Q3

REPORT INFORMATION
  Report Type: 
  Country: None (occurrence: None)
  Receive Date: 20040903
  Receipt Date: 20040121
  Transmission Date: 20050211
  Serious: Yes (Other)
  Sender: FDA-Public Use
  Company Number: US-GLAXOSMITHKLINE-A0494461A

PATIENT
  Age: 73 Year
  Sex: Female

DRUGS (15)
  1. REQUIP [Suspect]
     Indication: PARKINSON'S DISEASE
     Dosage: 1.5MG THREE TIMES PER DAY
     Route: 048
  2. PAXIL CR [Concomitant]
  3. SINEMET [Concomitant]
  4. ARTANE [Concomitant]
  5. LOTREL [Concomitant]
  6. DIGOXIN [Concomitant]
  7. FLOMAX [Concomitant]
  8. URECHOLINE [Concomitant]
  9. NEURONTIN [Concomitant]
  10. INDERAL LA [Concomitant]
  11. ASPIRIN [Concomitant]
  12. TRIAMTERENE [Concomitant]
  13. KLONOPIN [Concomitant]
  14. CASODEX [Concomitant]
  15. SEROQUEL [Concomitant]

REACTIONS (2)
  - HALLUCINATION [None]
  - LIBIDO INCREASED [None]
